FAERS Safety Report 6305574-1 (Version None)
Quarter: 2009Q3

REPORT INFORMATION
  Report Type: 
  Country: None (occurrence: None)
  Receive Date: 20090807
  Receipt Date: 20090727
  Transmission Date: 20100115
  Serious: Yes (Death, Hospitalization)
  Sender: FDA-Public Use
  Company Number: 1-19309129

PATIENT
  Sex: Male

DRUGS (4)
  1. WARFARIN SODIUM [Suspect]
     Indication: CEREBROVASCULAR ACCIDENT
     Dosage: ORAL
     Route: 048
     Dates: start: 19960101, end: 20000101
  2. PHENYTOIN [Concomitant]
  3. DIGOXIN [Concomitant]
  4. CAPHALEXIN [Concomitant]

REACTIONS (21)
  - AORTIC VALVE CALCIFICATION [None]
  - AORTIC VALVE STENOSIS [None]
  - BODY TEMPERATURE DECREASED [None]
  - BRONCHITIS [None]
  - CARDIAC HYPERTROPHY [None]
  - CHRONIC OBSTRUCTIVE PULMONARY DISEASE [None]
  - CONTUSION [None]
  - CORONARY ARTERY DISEASE [None]
  - DILATATION VENTRICULAR [None]
  - DRUG INTERACTION [None]
  - FALL [None]
  - FOOD INTOLERANCE [None]
  - GASTRIC ULCER [None]
  - HAEMOGLOBIN DECREASED [None]
  - HEPATIC CONGESTION [None]
  - INTERNATIONAL NORMALISED RATIO INCREASED [None]
  - PERICARDIAL HAEMORRHAGE [None]
  - PNEUMOCONIOSIS [None]
  - PROTHROMBIN TIME ABNORMAL [None]
  - PULMONARY OEDEMA [None]
  - SHOCK [None]
